FAERS Safety Report 13195655 (Version 1)
Quarter: 2017Q1

REPORT INFORMATION
  Report Type: Spontaneous
  Country: US (occurrence: US)
  Receive Date: 20170207
  Receipt Date: 20170207
  Transmission Date: 20170428
  Serious: No
  Sender: FDA-Public Use
  Company Number: None

PATIENT
  Age: 67 Year
  Sex: Male

DRUGS (1)
  1. ENBREL [Suspect]
     Active Substance: ETANERCEPT
     Indication: RHEUMATOID ARTHRITIS
     Route: 058
     Dates: start: 20120404

REACTIONS (4)
  - Benign prostatic hyperplasia [None]
  - Surgical procedure repeated [None]
  - Prostatic operation [None]
  - Dysuria [None]

NARRATIVE: CASE EVENT DATE: 20170203
